FAERS Safety Report 4937678-X (Version None)
Quarter: 2006Q1

REPORT INFORMATION
  Report Type: 
  Country: None (occurrence: None)
  Receive Date: 20060309
  Receipt Date: 20060222
  Transmission Date: 20060701
  Serious: Yes (Death)
  Sender: FDA-Public Use
  Company Number: BEWYE421122FEB06

PATIENT
  Sex: Male
  Weight: 56 kg

DRUGS (1)
  1. ENBREL [Suspect]
     Indication: RHEUMATOID ARTHRITIS
     Route: 058
     Dates: start: 20031017, end: 20051205

REACTIONS (1)
  - CARDIO-RESPIRATORY ARREST [None]
